FAERS Safety Report 17179131 (Version 2)
Quarter: 2019Q4

REPORT INFORMATION
  Report Type: Report from Study
  Country: CA (occurrence: CA)
  Receive Date: 20191219
  Receipt Date: 20191227
  Transmission Date: 20200122
  Serious: Yes (Hospitalization, Other)
  Sender: FDA-Public Use
  Company Number: CA-SAMSUNG BIOEPIS-SB-2019-30603

PATIENT
  Age: 72 Year
  Sex: Male
  Weight: 74.1 kg

DRUGS (6)
  1. RENFLEXIS [Suspect]
     Active Substance: INFLIXIMAB-ABDA
     Indication: CROHN^S DISEASE
     Dosage: AT WEEK ZERO, WEEK TWO AND WEEK 6
     Route: 042
     Dates: start: 20190829, end: 20190912
  2. PENTASA [Concomitant]
     Active Substance: MESALAMINE
     Indication: PRODUCT USED FOR UNKNOWN INDICATION
     Dosage: 2 TABLETS
     Route: 048
  3. CHOLESTRYRAMINE [Concomitant]
     Indication: PRODUCT USED FOR UNKNOWN INDICATION
     Dosage: 4 GM/9 GM
     Route: 065
  4. AZATHIOPRINE. [Suspect]
     Active Substance: AZATHIOPRINE
     Indication: CROHN^S DISEASE
     Route: 048
  5. ALENDRONATE [Concomitant]
     Active Substance: ALENDRONATE SODIUM
     Indication: PRODUCT USED FOR UNKNOWN INDICATION
     Route: 065
  6. RABEPRAZOLE [Concomitant]
     Active Substance: RABEPRAZOLE
     Indication: PRODUCT USED FOR UNKNOWN INDICATION
     Route: 048

REACTIONS (16)
  - Rhinorrhoea [Unknown]
  - Decreased appetite [Recovered/Resolved]
  - Lymphoma [Unknown]
  - Gastrooesophageal reflux disease [Unknown]
  - Hepatosplenomegaly [Not Recovered/Not Resolved]
  - Infection [Not Recovered/Not Resolved]
  - Chills [Unknown]
  - Hepatic cirrhosis [Not Recovered/Not Resolved]
  - Cough [Unknown]
  - Weight decreased [Recovered/Resolved]
  - Pyrexia [Not Recovered/Not Resolved]
  - Viral infection [Unknown]
  - Iron deficiency anaemia [Unknown]
  - Pain [Not Recovered/Not Resolved]
  - Transfusion reaction [Unknown]
  - Fatigue [Recovered/Resolved]

NARRATIVE: CASE EVENT DATE: 20191003
